FAERS Safety Report 24622977 (Version 1)
Quarter: 2024Q4

REPORT INFORMATION
  Report Type: Report from Study
  Country: US (occurrence: US)
  Receive Date: 20241115
  Receipt Date: 20241115
  Transmission Date: 20250114
  Serious: No
  Sender: MIRUM PHARMACEUTICALS
  Company Number: US-MIRUM PHARMACEUTICALS, INC.-US-MIR-24-00734

PATIENT

DRUGS (10)
  1. LIVMARLI [Suspect]
     Active Substance: MARALIXIBAT CHLORIDE
     Indication: Alagille syndrome
     Dosage: 0.45 MILLILITER, QD
     Route: 048
  2. LIVMARLI [Suspect]
     Active Substance: MARALIXIBAT CHLORIDE
     Indication: Cholestasis
     Dosage: 9 MILLILITER 30 DAYS ROUND
     Route: 048
  3. LIVMARLI [Suspect]
     Active Substance: MARALIXIBAT CHLORIDE
     Dosage: 14 MILLILITER 30 DAYS ROUND
     Route: 048
  4. LIVMARLI [Suspect]
     Active Substance: MARALIXIBAT CHLORIDE
     Dosage: UNK
     Route: 048
     Dates: start: 2021
  5. ASPIRIN [Concomitant]
     Active Substance: ASPIRIN
     Indication: Product used for unknown indication
     Dosage: 81 MILLIGRAM, QD (MAY HAVE BEEN LOWER DOSES AT THE START)
     Route: 065
     Dates: start: 20240424
  6. VITAMIN D NOS [Concomitant]
     Active Substance: CHOLECALCIFEROL\ERGOCALCIFEROL
     Indication: Product used for unknown indication
     Dosage: 8000 INTERNATIONAL UNIT, DAILY (MAY HAVE BEEN LOWER DOSES AT THE START)
     Route: 065
     Dates: start: 20211203
  7. VITAMIN K [Concomitant]
     Active Substance: PHYTONADIONE
     Indication: Product used for unknown indication
     Dosage: 1 MILLIGRAM, DAILY (MAY HAVE BEEN LOWER DOSES AT THE START)
     Route: 065
     Dates: start: 20221121
  8. RIFAMPIN [Concomitant]
     Active Substance: RIFAMPIN
     Indication: Product used for unknown indication
     Dosage: 70 MILLIGRAM, QD (NIGHTLY) (MAY HAVE BEEN LOWER DOSES AT THE START)
     Route: 065
     Dates: start: 20220929
  9. URSODIOL [Concomitant]
     Active Substance: URSODIOL
     Indication: Product used for unknown indication
     Dosage: 120 MILLIGRAM, BID (MAY HAVE BEEN LOWER DOSES AT THE START)
     Route: 065
     Dates: start: 20210720
  10. .ALPHA.-TOCOPHEROL [Concomitant]
     Active Substance: .ALPHA.-TOCOPHEROL
     Indication: Product used for unknown indication
     Dosage: 10 INTERNATIONAL UNIT, DAILY (MAY HAVE BEEN LOWER DOSES AT THE START)
     Route: 065
     Dates: start: 20210507

REACTIONS (4)
  - Bile acids abnormal [Unknown]
  - Sleep disorder [Recovering/Resolving]
  - Prescribed overdose [Unknown]
  - Prescribed underdose [Unknown]

NARRATIVE: CASE EVENT DATE: 20240301
